FAERS Safety Report 5355290-8 (Version None)
Quarter: 2007Q2

REPORT INFORMATION
  Report Type: 
  Country: None (occurrence: None)
  Receive Date: 20070606
  Receipt Date: 20070523
  Transmission Date: 20071010
  Serious: Yes (Other)
  Sender: FDA-Public Use
  Company Number: 3003374197-2006000005

PATIENT
  Age: 87 Year
  Sex: Female

DRUGS (1)
  1. 07-0095 OS [Suspect]
     Dosage: TRANSPLANTATION
     Dates: start: 20070202

REACTIONS (1)
  - LABORATORY TEST INTERFERENCE [None]
